FAERS Safety Report 14266737 (Version 2)
Quarter: 2018Q1

REPORT INFORMATION
  Report Type: Spontaneous
  Country: US (occurrence: US)
  Receive Date: 20171211
  Receipt Date: 20180115
  Transmission Date: 20180508
  Serious: Yes (Hospitalization)
  Sender: FDA-Public Use
  Company Number: US-BEH-2017085668

PATIENT
  Sex: Male
  Weight: 92.63 kg

DRUGS (31)
  1. PRIVIGEN [Suspect]
     Active Substance: HUMAN IMMUNOGLOBULIN G
     Dosage: UNK
     Route: 042
  2. DIPHENHYDRAMINE. [Concomitant]
     Active Substance: DIPHENHYDRAMINE
  3. HEPARIN [Concomitant]
     Active Substance: HEPARIN SODIUM
  4. COREG [Concomitant]
     Active Substance: CARVEDILOL
  5. PRIMIDONE. [Concomitant]
     Active Substance: PRIMIDONE
  6. SERTRALINE [Concomitant]
     Active Substance: SERTRALINE HYDROCHLORIDE
  7. NITROGLYCERIN. [Concomitant]
     Active Substance: NITROGLYCERIN
  8. PLAVIX [Concomitant]
     Active Substance: CLOPIDOGREL BISULFATE
  9. ACETAMINOPHEN. [Concomitant]
     Active Substance: ACETAMINOPHEN
  10. VITAMIN C [Concomitant]
     Active Substance: ASCORBIC ACID
  11. NEXIUM [Concomitant]
     Active Substance: ESOMEPRAZOLE MAGNESIUM
  12. VYTORIN [Concomitant]
     Active Substance: EZETIMIBE\SIMVASTATIN
  13. VALACYCLOVIR [Concomitant]
     Active Substance: VALACYCLOVIR HYDROCHLORIDE
  14. LOSARTAN. [Concomitant]
     Active Substance: LOSARTAN
  15. PROVENTIL [Concomitant]
     Active Substance: ALBUTEROL
  16. NORMAL SALINE [Concomitant]
     Active Substance: SODIUM CHLORIDE
  17. EPINEPHRINE. [Concomitant]
     Active Substance: EPINEPHRINE
  18. ALDACTONE [Concomitant]
     Active Substance: SPIRONOLACTONE
  19. MESTINON [Concomitant]
     Active Substance: PYRIDOSTIGMINE BROMIDE
  20. ELIQUIS [Concomitant]
     Active Substance: APIXABAN
  21. LASIX [Concomitant]
     Active Substance: FUROSEMIDE
  22. ASPIRIN. [Concomitant]
     Active Substance: ASPIRIN
  23. MULTIVITAMINS [Concomitant]
     Active Substance: VITAMINS
  24. PRIVIGEN [Suspect]
     Active Substance: HUMAN IMMUNOGLOBULIN G
     Indication: MYASTHENIA GRAVIS
     Dosage: 400 MG/KG, DAILY FOR 5 DAYS EVERY 4 WEEKS OR AS DIRECTED
     Route: 042
     Dates: start: 20161109
  25. SODIUM CHLORIDE. [Concomitant]
     Active Substance: SODIUM CHLORIDE
  26. CELLCEPT [Concomitant]
     Active Substance: MYCOPHENOLATE MOFETIL\MYCOPHENOLATE MOFETIL HYDROCHLORIDE
  27. TESSALON [Concomitant]
     Active Substance: BENZONATATE
  28. VITAMIN B12 [Concomitant]
     Active Substance: CYANOCOBALAMIN
  29. VITAMIN D3 [Concomitant]
     Active Substance: CHOLECALCIFEROL
  30. CREON [Concomitant]
     Active Substance: PANCRELIPASE AMYLASE\PANCRELIPASE LIPASE\PANCRELIPASE PROTEASE
  31. TURMERIC                           /01079602/ [Concomitant]
     Active Substance: HERBALS\TURMERIC

REACTIONS (1)
  - Coronary arterial stent insertion [Unknown]
